FAERS Safety Report 8586317-8 (Version None)
Quarter: 2012Q3

REPORT INFORMATION
  Report Type: 
  Country: None (occurrence: None)
  Receive Date: 20120810
  Receipt Date: 19900516
  Transmission Date: 20120928
  Serious: Yes (Other)
  Sender: FDA-Public Use
  Company Number: US-ROCHE-1098723

PATIENT
  Age: 49 Year
  Sex: Male

DRUGS (1)
  1. ACTIVASE [Suspect]
     Indication: ACUTE MYOCARDIAL INFARCTION
     Dosage: 2 VIALS
     Route: 065

REACTIONS (2)
  - CHEST PAIN [None]
  - VENTRICULAR EXTRASYSTOLES [None]
